FAERS Safety Report 19840082 (Version 1)
Quarter: 2021Q3

REPORT INFORMATION
  Report Type: Spontaneous
  Country: US (occurrence: US)
  Receive Date: 20210916
  Receipt Date: 20210916
  Transmission Date: 20211014
  Serious: No
  Sender: FDA-Public Use
  Company Number: None

PATIENT
  Age: 26 Year
  Sex: Male
  Weight: 72 kg

DRUGS (1)
  1. CLINDAMYCIN. [Suspect]
     Active Substance: CLINDAMYCIN
     Indication: TOOTH INFECTION
     Dosage: ?          QUANTITY:1 TABLET(S);?
     Route: 048
     Dates: start: 20210827, end: 20210903

REACTIONS (10)
  - Diarrhoea [None]
  - Fatigue [None]
  - Chest pain [None]
  - Dyspepsia [None]
  - Nausea [None]
  - Myalgia [None]
  - Asthenia [None]
  - Chills [None]
  - Anxiety [None]
  - Feeling cold [None]

NARRATIVE: CASE EVENT DATE: 20210827
